FAERS Safety Report 11570426 (Version 1)
Quarter: 2015Q3

REPORT INFORMATION
  Report Type: Spontaneous
  Country: US (occurrence: US)
  Receive Date: 20150929
  Receipt Date: 20150929
  Transmission Date: 20151125
  Serious: Yes (Other)
  Sender: FDA-Public Use
  Company Number: US-PURDUE-USA-2015-0126348

PATIENT
  Sex: Female

DRUGS (2)
  1. DRONABINOL CAPSULES [Suspect]
     Active Substance: DRONABINOL
     Indication: PRODUCT USED FOR UNKNOWN INDICATION
     Dosage: 5 MG, AC PM
     Route: 048
     Dates: start: 20150911
  2. DRONABINOL CAPSULES [Suspect]
     Active Substance: DRONABINOL
     Dosage: 5 MG, AC PM
     Route: 048

REACTIONS (1)
  - Drug hypersensitivity [Recovered/Resolved]
